FAERS Safety Report 10482225 (Version 1)
Quarter: 2014Q3

REPORT INFORMATION
  Report Type: Report from Study
  Country: US (occurrence: US)
  Receive Date: 20140929
  Receipt Date: 20140929
  Transmission Date: 20150326
  Serious: No
  Sender: FDA-Public Use
  Company Number: US-ALEXION-A200700312

PATIENT
  Age: 56 Year
  Sex: Male

DRUGS (1)
  1. SOLIRIS [Suspect]
     Active Substance: ECULIZUMAB
     Indication: PAROXYSMAL NOCTURNAL HAEMOGLOBINURIA
     Dosage: UNK
     Route: 042
     Dates: start: 200707

REACTIONS (13)
  - Nasal congestion [Unknown]
  - Feeling abnormal [Unknown]
  - Cough [Unknown]
  - Renal impairment [Recovering/Resolving]
  - Pyrexia [Unknown]
  - Chills [Unknown]
  - Pain [Unknown]
  - Haemoglobin decreased [Unknown]
  - Jaundice [Recovered/Resolved]
  - Fatigue [Recovering/Resolving]
  - Transfusion [Unknown]
  - Nasopharyngitis [Unknown]
  - Influenza [Unknown]

NARRATIVE: CASE EVENT DATE: 200802
